FAERS Safety Report 6973982 (Version 3)
Quarter: 2013Q1

REPORT INFORMATION
  Report Type: Spontaneous
  Country: US (occurrence: US)
  Receive Date: 20060721
  Receipt Date: 20130123
  Transmission Date: 20140127
  Serious: Yes (Other)
  Sender: FDA-Public Use
  Company Number: US-PFIZER INC-2006087373

PATIENT
  Age: 50 Year
  Sex: Female
  Weight: 72 kg

DRUGS (16)
  1. PROVERA [Suspect]
     Indication: HORMONE REPLACEMENT THERAPY
     Dosage: UNK
     Route: 048
     Dates: start: 198401, end: 199207
  2. PROVERA [Suspect]
     Indication: OSTEOPOROSIS
  3. PROVERA [Suspect]
     Indication: VULVOVAGINAL DRYNESS
  4. PROVERA [Suspect]
     Indication: HOT FLUSH
  5. PROVERA [Suspect]
     Indication: NIGHT SWEATS
  6. PREMARIN [Suspect]
     Indication: HORMONE REPLACEMENT THERAPY
     Dosage: UNK
     Route: 048
     Dates: start: 198401, end: 199207
  7. PREMARIN [Suspect]
     Indication: OSTEOPOROSIS
  8. PREMARIN [Suspect]
     Indication: VULVOVAGINAL DRYNESS
  9. PREMARIN [Suspect]
     Indication: HOT FLUSH
  10. PREMARIN [Suspect]
     Indication: NIGHT SWEATS
  11. MEDROXYPROGESTERONE ACETATE [Suspect]
     Indication: HORMONE REPLACEMENT THERAPY
     Dosage: UNK
     Route: 048
     Dates: start: 198401, end: 199207
  12. MEDROXYPROGESTERONE ACETATE [Suspect]
     Indication: OSTEOPOROSIS
  13. MEDROXYPROGESTERONE ACETATE [Suspect]
     Indication: VULVOVAGINAL DRYNESS
  14. MEDROXYPROGESTERONE ACETATE [Suspect]
     Indication: HOT FLUSH
  15. MEDROXYPROGESTERONE ACETATE [Suspect]
     Indication: NIGHT SWEATS
  16. VASOTEC [Concomitant]
     Indication: BLOOD PRESSURE
     Dosage: UNK
     Dates: start: 1984, end: 2003

REACTIONS (6)
  - Breast cancer female [Unknown]
  - Cellulitis [Unknown]
  - Depression [Unknown]
  - Anxiety [Unknown]
  - Joint range of motion decreased [Unknown]
  - Alopecia [Unknown]
